FAERS Safety Report 7397023-X (Version None)
Quarter: 2011Q2

REPORT INFORMATION
  Report Type: 
  Country: None (occurrence: None)
  Receive Date: 20110406
  Receipt Date: 20110304
  Transmission Date: 20111010
  Serious: Yes (Other)
  Sender: FDA-Public Use
  Company Number: MN-BAYER-201039290NA

PATIENT
  Sex: Female

DRUGS (6)
  1. RETIN-A [Concomitant]
  2. UNCODEABLE ^UNCLASSIFIABLE^ [Concomitant]
  3. YASMIN [Suspect]
     Indication: PRODUCT USED FOR UNKNOWN INDICATION
     Dosage: UNK
     Dates: start: 20060201, end: 20060418
  4. SYNTHROID [Concomitant]
  5. ZANTAC [Concomitant]
     Indication: PRODUCT USED FOR UNKNOWN INDICATION
     Dosage: UNK UNK, BID
     Dates: start: 20060410
  6. UNCODEABLE ^UNCLASSIFIABLE^ [Concomitant]

REACTIONS (2)
  - CHOLECYSTITIS [None]
  - CHOLECYSTECTOMY [None]
